FAERS Safety Report 5426387-9 (Version None)
Quarter: 2007Q3

REPORT INFORMATION
  Report Type: 
  Country: None (occurrence: None)
  Receive Date: 20070731
  Receipt Date: 20070419
  Transmission Date: 20080115
  Serious: No
  Sender: FDA-Public Use
  Company Number: US200704004574

PATIENT
  Age: 64 Year
  Sex: Female
  Weight: 142.9 kg

DRUGS (7)
  1. BYETTA [Suspect]
     Indication: TYPE 2 DIABETES MELLITUS
     Dosage: 5 UG, 2/D, ORAL; 10 UG, 2/D, ORAL
     Route: 048
     Dates: start: 20061001, end: 20061201
  2. BYETTA [Suspect]
     Indication: TYPE 2 DIABETES MELLITUS
     Dosage: 5 UG, 2/D, ORAL; 10 UG, 2/D, ORAL
     Route: 048
     Dates: start: 20061201
  3. METFORMIN HCL [Concomitant]
  4. AMARYL (GLIMEPRIDIE) [Concomitant]
  5. ACTOS (PIOGLITAZONE UNKNOWN FORMULATION) [Concomitant]
  6. ZOLOFT [Concomitant]
  7. BUSPAR [Concomitant]

REACTIONS (6)
  - BLOOD GLUCOSE DECREASED [None]
  - BLOOD GLUCOSE INCREASED [None]
  - DEPRESSION [None]
  - DRUG INEFFECTIVE [None]
  - FLATULENCE [None]
  - HYPERSOMNIA [None]
